FAERS Safety Report 14274519 (Version 1)
Quarter: 2017Q4

REPORT INFORMATION
  Report Type: Spontaneous
  Country: AT (occurrence: AT)
  Receive Date: 20171212
  Receipt Date: 20171212
  Transmission Date: 20180321
  Serious: Yes (Other)
  Sender: FDA-Public Use
  Company Number: AT-CORDEN PHARMA LATINA S.P.A.-AT-2017COR000234

PATIENT
  Age: 14 Year
  Sex: Male

DRUGS (3)
  1. ETOPOSIDE. [Suspect]
     Active Substance: ETOPOSIDE
     Indication: GERM CELL NEOPLASM
     Dosage: 250 MG/M2/DAY
     Route: 065
  2. IFOSFAMIDE. [Suspect]
     Active Substance: IFOSFAMIDE
     Indication: GERM CELL NEOPLASM
     Dosage: UNK
     Route: 065
  3. CARBOPLATIN. [Suspect]
     Active Substance: CARBOPLATIN
     Indication: GERM CELL NEOPLASM
     Dosage: 500 MG/M2/DAY
     Route: 065

REACTIONS (3)
  - Venoocclusive liver disease [Recovered/Resolved]
  - Cholestasis [Recovered/Resolved]
  - Hepatocellular injury [Recovered/Resolved]
